FAERS Safety Report 12421945 (Version 1)
Quarter: 2016Q2

REPORT INFORMATION
  Report Type: Report from Study
  Country: US (occurrence: US)
  Receive Date: 20160531
  Receipt Date: 20160531
  Transmission Date: 20160815
  Serious: Yes (Other)
  Sender: FDA-Public Use
  Company Number: US-ABBVIE-16K-163-1636285-00

PATIENT
  Age: 43 Year
  Sex: Female

DRUGS (3)
  1. AZULFIDINE [Suspect]
     Active Substance: SULFASALAZINE
     Indication: PRODUCT USED FOR UNKNOWN INDICATION
     Route: 065
     Dates: start: 201602
  2. HUMIRA [Suspect]
     Active Substance: ADALIMUMAB
     Indication: CROHN^S DISEASE
     Route: 058
     Dates: end: 201601
  3. BUDESONIDE. [Suspect]
     Active Substance: BUDESONIDE
     Indication: PRODUCT USED FOR UNKNOWN INDICATION
     Route: 065
     Dates: start: 201602

REACTIONS (4)
  - Blindness [Unknown]
  - Ovarian cyst [Unknown]
  - Abdominal pain [Unknown]
  - Oral mucosal eruption [Unknown]

NARRATIVE: CASE EVENT DATE: 201605
